FAERS Safety Report 5518218-3 (Version None)
Quarter: 2007Q4

REPORT INFORMATION
  Report Type: 
  Country: None (occurrence: None)
  Receive Date: 20071115
  Receipt Date: 20071108
  Transmission Date: 20080405
  Serious: Yes (Other)
  Sender: FDA-Public Use
  Company Number: PHEH2007US14656

PATIENT
  Age: 81 Year
  Sex: Male

DRUGS (1)
  1. ENABLEX [Suspect]
     Dosage: 7.5 MG, UNK

REACTIONS (3)
  - LIP EXFOLIATION [None]
  - LIP PAIN [None]
  - LIP SWELLING [None]
